FAERS Safety Report 8546970-1 (Version None)
Quarter: 2012Q3

REPORT INFORMATION
  Report Type: 
  Country: None (occurrence: None)
  Receive Date: 20120727
  Receipt Date: 20120305
  Transmission Date: 20120928
  Serious: No
  Sender: FDA-Public Use
  Company Number: US-ASTRAZENECA-2012SE15229

PATIENT
  Age: 56 Year
  Sex: Female
  Weight: 141.5 kg

DRUGS (3)
  1. CINGULAIR [Concomitant]
     Indication: ASTHMA
  2. SEROQUEL XR [Suspect]
     Indication: MAJOR DEPRESSION
     Route: 048
  3. CYMBALTA [Concomitant]

REACTIONS (4)
  - ASTHENIA [None]
  - WEIGHT INCREASED [None]
  - SOMNOLENCE [None]
  - DRUG DOSE OMISSION [None]
